FAERS Safety Report 22154645 (Version 1)
Quarter: 2023Q1

REPORT INFORMATION
  Report Type: Spontaneous
  Country: US (occurrence: US)
  Receive Date: 20230330
  Receipt Date: 20230330
  Transmission Date: 20230417
  Serious: No
  Sender: FDA-Public Use
  Company Number: US-AUROBINDO-AUR-APL-2022-031917

PATIENT
  Age: 16 Year
  Sex: Female
  Weight: 56.6 kg

DRUGS (1)
  1. SERTRALINE HYDROCHLORIDE [Suspect]
     Active Substance: SERTRALINE HYDROCHLORIDE
     Indication: Obsessive-compulsive disorder
     Dosage: 1 DOSAGE FORM, ONCE A DAY
     Route: 048
     Dates: start: 20220615, end: 20220728

REACTIONS (4)
  - Anger [Recovering/Resolving]
  - Eye disorder [Recovering/Resolving]
  - Feeling abnormal [Recovering/Resolving]
  - Inappropriate affect [Recovering/Resolving]
